FAERS Safety Report 25859606 (Version 1)
Quarter: 2025Q3

REPORT INFORMATION
  Report Type: Spontaneous
  Country: US (occurrence: US)
  Receive Date: 20250929
  Receipt Date: 20250929
  Transmission Date: 20251020
  Serious: Yes (Hospitalization, Other)
  Sender: MERCK SHARP & DOHME LLC
  Company Number: US-009507513-2333728

PATIENT
  Age: 78 Year
  Sex: Female

DRUGS (5)
  1. PEMBROLIZUMAB [Suspect]
     Active Substance: PEMBROLIZUMAB
  2. NIVOLUMAB [Suspect]
     Active Substance: NIVOLUMAB
  3. CARBOPLATIN [Concomitant]
     Active Substance: CARBOPLATIN
  4. PACLITAXEL [Concomitant]
     Active Substance: PACLITAXEL
  5. CETUXIMAB [Concomitant]
     Active Substance: CETUXIMAB

REACTIONS (2)
  - Toxic epidermal necrolysis [Unknown]
  - Product use issue [Unknown]
